FAERS Safety Report 4842386-X (Version None)
Quarter: 2005Q4

REPORT INFORMATION
  Report Type: 
  Country: None (occurrence: None)
  Receive Date: 20051201
  Receipt Date: 20050926
  Transmission Date: 20060501
  Serious: Yes (Hospitalization)
  Sender: FDA-Public Use
  Company Number: FR-AVENTIS-200513152FR

PATIENT
  Age: 24 Year
  Sex: Female
  Weight: 48 kg

DRUGS (1)
  1. BIRODOGYL [Suspect]
     Route: 048
     Dates: start: 20050801, end: 20050802

REACTIONS (6)
  - HEPATIC TRAUMA [None]
  - HEPATOCELLULAR DAMAGE [None]
  - INFLAMMATION [None]
  - SKIN NECROSIS [None]
  - SKIN ULCER [None]
  - WHITE BLOOD CELL COUNT INCREASED [None]
